FAERS Safety Report 5052188-X (Version None)
Quarter: 2006Q3

REPORT INFORMATION
  Report Type: 
  Country: None (occurrence: None)
  Receive Date: 20060714
  Receipt Date: 20060714
  Transmission Date: 20061208
  Serious: Yes (Other)
  Sender: FDA-Public Use
  Company Number: None

PATIENT
  Age: 64 Year
  Sex: Female
  Weight: 58.9676 kg

DRUGS (1)
  1. ACTONEL [Suspect]
     Indication: OSTEOPOROSIS
     Dosage: 35 MG  1/WEEK  PO
     Route: 048
     Dates: start: 20040904, end: 20060304

REACTIONS (4)
  - MELANOCYTIC NAEVUS [None]
  - PRURITUS [None]
  - SKIN CANCER [None]
  - SQUAMOUS CELL CARCINOMA [None]
